FAERS Safety Report 17844525 (Version 1)
Quarter: 2020Q2

REPORT INFORMATION
  Report Type: Spontaneous
  Country: US (occurrence: US)
  Receive Date: 20200601
  Receipt Date: 20200601
  Transmission Date: 20200714
  Serious: Yes (Hospitalization, Other)
  Sender: FDA-Public Use
  Company Number: US-APOTEX-2020AP011314

PATIENT
  Age: 66 Year
  Sex: Female

DRUGS (3)
  1. ALPRAZOLAM. [Suspect]
     Active Substance: ALPRAZOLAM
     Indication: PRODUCT USED FOR UNKNOWN INDICATION
     Dosage: 1 ?G, TID
     Route: 065
  2. LEVOTHYROXINE. [Interacting]
     Active Substance: LEVOTHYROXINE
     Indication: PRODUCT USED FOR UNKNOWN INDICATION
     Dosage: 137-150 MICROGRAM, ALTERNATING DAILY
     Route: 065
  3. BUPROPION. [Interacting]
     Active Substance: BUPROPION
     Indication: SMOKING CESSATION THERAPY
     Dosage: 150 MG, QD (4 DAYS PRIOR)
     Route: 065

REACTIONS (4)
  - Convulsive threshold lowered [Unknown]
  - Drug interaction [Unknown]
  - Withdrawal syndrome [Unknown]
  - Seizure [Recovered/Resolved]
